FAERS Safety Report 16194389 (Version 1)
Quarter: 2019Q2

REPORT INFORMATION
  Report Type: Spontaneous
  Country: FR (occurrence: FR)
  Receive Date: 20190414
  Receipt Date: 20190414
  Transmission Date: 20190711
  Serious: Yes (Death)
  Sender: FDA-Public Use
  Company Number: FR-TEVA-2019-FR-1036393

PATIENT
  Age: 63 Year
  Sex: Male
  Weight: 122 kg

DRUGS (9)
  1. METFORMINE [Suspect]
     Active Substance: METFORMIN HYDROCHLORIDE
     Indication: TYPE 2 DIABETES MELLITUS
     Dosage: 1 DOSAGE FORMS DAILY;
     Route: 048
     Dates: end: 20190306
  2. GLICLAZIDE [Suspect]
     Active Substance: GLICLAZIDE
     Indication: TYPE 2 DIABETES MELLITUS
     Dosage: 3 DOSAGE FORMS DAILY;
     Route: 048
     Dates: end: 20190306
  3. LASILIX SPECIAL 500 MG, COMPRIM? S?CABLE [Suspect]
     Active Substance: FUROSEMIDE
     Indication: CARDIOMYOPATHY
     Dosage: 1 DOSAGE FORMS DAILY;
     Route: 048
     Dates: start: 201902, end: 20190306
  4. ELIQUIS [Suspect]
     Active Substance: APIXABAN
     Indication: CARDIOMYOPATHY
     Route: 048
     Dates: start: 201902
  5. TAHOR [Suspect]
     Active Substance: ATORVASTATIN CALCIUM
     Indication: DYSLIPIDAEMIA
     Dosage: 1 DOSAGE FORMS DAILY;
     Route: 048
     Dates: end: 20190307
  6. JANUMET [Suspect]
     Active Substance: METFORMIN HYDROCHLORIDE\SITAGLIPTIN PHOSPHATE
     Indication: TYPE 2 DIABETES MELLITUS
     Dosage: 2 DOSAGE FORMS DAILY;
     Route: 048
     Dates: end: 20190306
  7. BISOPROLOL (HEMIFUMARATE DE) [Suspect]
     Active Substance: BISOPROLOL FUMARATE
     Indication: HYPERTENSION
     Dosage: 1 DOSAGE FORMS DAILY;
     Route: 048
     Dates: end: 20190306
  8. ZYLORIC 200 MG, COMPRIM? [Suspect]
     Active Substance: ALLOPURINOL
     Indication: GOUT
     Dosage: 1 DOSAGE FORMS DAILY;
     Route: 048
     Dates: end: 20190306
  9. EUPANTOL [Suspect]
     Active Substance: PANTOPRAZOLE SODIUM
     Indication: PRODUCT USED FOR UNKNOWN INDICATION
     Route: 048
     Dates: start: 201902

REACTIONS (3)
  - Acute kidney injury [Fatal]
  - Lactic acidosis [Fatal]
  - Cardiogenic shock [Fatal]

NARRATIVE: CASE EVENT DATE: 20190307
